FAERS Safety Report 7547620-3 (Version None)
Quarter: 2011Q2

REPORT INFORMATION
  Report Type: 
  Country: None (occurrence: None)
  Receive Date: 20110614
  Receipt Date: 20110513
  Transmission Date: 20111010
  Serious: Yes (Hospitalization)
  Sender: FDA-Public Use
  Company Number: US-AMGEN-USACT2011025118

PATIENT
  Age: 71 Year
  Sex: Male
  Weight: 108.84 kg

DRUGS (24)
  1. KLOR-CON [Concomitant]
     Dosage: 3 MEQ, UNK
     Route: 048
  2. COREG [Concomitant]
     Dosage: 25 MG, BID
     Route: 048
  3. LASIX [Concomitant]
     Dosage: 80 MG, QD
     Route: 048
  4. FLOMAX [Concomitant]
     Dosage: 0.4 MG, QD
     Route: 048
  5. VITAMIN E [Concomitant]
  6. MULTI-VITAMINS [Concomitant]
  7. PLAVIX [Concomitant]
     Dosage: 75 MG, QD
     Route: 048
  8. FOLIC ACID [Concomitant]
     Dosage: 400 A?G, QD
     Route: 048
  9. BLINDED DARBEPOETIN ALFA [Suspect]
     Indication: CARDIAC FAILURE
     Dates: start: 20081229
  10. GLYBURIDE [Concomitant]
     Dosage: 5 MG, QD
     Route: 048
  11. PRANDIL [Concomitant]
     Dosage: 1 MG, UNK
     Route: 048
  12. LOVAZA [Concomitant]
     Dosage: 2 MG, BID
     Route: 048
  13. FERROUS SULFATE TAB [Concomitant]
     Dosage: 325 MG, QD
  14. MAGNESIUM OXIDE [Concomitant]
  15. ZINC [Concomitant]
  16. PLACEBO [Suspect]
     Indication: CARDIAC FAILURE
     Dates: start: 20081229
  17. GLUCOPHAGE [Concomitant]
     Dosage: UNK UNK, BID
     Route: 048
  18. LIPITOR [Concomitant]
     Dosage: 40 MG, QD
     Route: 048
  19. AVODART [Concomitant]
     Dosage: 0.5 MG, QD
     Route: 048
  20. SAW PALMETTO [Concomitant]
  21. COUMADIN [Concomitant]
     Dosage: 1 MG, QD
     Route: 048
  22. ATACAND [Concomitant]
     Dosage: 15 MG, QD
     Route: 048
  23. AMIODARONE HCL [Concomitant]
     Dosage: 300 MG, QD
     Route: 048
  24. NIASPAN [Concomitant]
     Dosage: 50 MG, QD
     Route: 048

REACTIONS (1)
  - EJECTION FRACTION DECREASED [None]
